FAERS Safety Report 17962776 (Version 1)
Quarter: 2020Q2

REPORT INFORMATION
  Report Type: Spontaneous
  Country: US (occurrence: US)
  Receive Date: 20200630
  Receipt Date: 20200630
  Transmission Date: 20200714
  Serious: No
  Sender: FDA-Public Use
  Company Number: US-INDIVIOR LIMITED-INDV-124288-2020

PATIENT
  Age: 36 Year
  Sex: Male

DRUGS (1)
  1. SUBLOCADE [Suspect]
     Active Substance: BUPRENORPHINE
     Indication: DRUG DEPENDENCE
     Dosage: 300 MILLIGRAM, QMO (THIRD INJECTION)
     Route: 058
     Dates: start: 202001

REACTIONS (2)
  - Injection site infection [Recovered/Resolved]
  - Injection site extravasation [Recovered/Resolved]

NARRATIVE: CASE EVENT DATE: 20200310
